FAERS Safety Report 4748553-8 (Version None)
Quarter: 2005Q3

REPORT INFORMATION
  Report Type: 
  Country: None (occurrence: None)
  Receive Date: 20050818
  Receipt Date: 20050818
  Transmission Date: 20060218
  Serious: Yes (Other)
  Sender: FDA-Public Use
  Company Number: None

PATIENT
  Age: 85 Year
  Sex: Female
  Weight: 56.246 kg

DRUGS (1)
  1. TOPROL-XL [Suspect]
     Indication: BLOOD PRESSURE
     Dosage: TAKE 3 TABLETS BY MOUTH TWICE A DAY
     Dates: start: 20050618

REACTIONS (2)
  - DRUG INTOLERANCE [None]
  - ORAL MUCOSAL EXFOLIATION [None]
